FAERS Safety Report 17726171 (Version 1)
Quarter: 2020Q2

REPORT INFORMATION
  Report Type: Spontaneous
  Country: GB (occurrence: GB)
  Receive Date: 20200429
  Receipt Date: 20200429
  Transmission Date: 20200714
  Serious: Yes (Life-Threatening, Hospitalization, Disabling)
  Sender: FDA-Public Use
  Company Number: GB-009507513-2004GBR008125

PATIENT
  Age: 67 Year
  Sex: Female

DRUGS (3)
  1. ACETAMINOPHEN AND CODEINE [Concomitant]
     Active Substance: ACETAMINOPHEN\CODEINE PHOSPHATE
     Dosage: MARCH 2020. RARE USE - NOT PRESCRIBED ON ADMISSION. 8MG/500MG - UP TO 4 TIMES A DAY,AS NECESSARY (PR
     Route: 048
     Dates: start: 202003
  2. CACIT VITAMINE D3 [Concomitant]
     Active Substance: CALCIUM CARBONATE\CHOLECALCIFEROL
     Dosage: SACHETS, STOPPED AS CALCIUM IS IN RANGE.
     Route: 048
  3. ALENDRONATE SODIUM. [Suspect]
     Active Substance: ALENDRONATE SODIUM
     Dosage: 70 MILLIGRAM, QW
     Route: 048

REACTIONS (2)
  - Gastric perforation [Unknown]
  - Gastric ulcer perforation [Unknown]

NARRATIVE: CASE EVENT DATE: 20200415
